FAERS Safety Report 8331072-X (Version None)
Quarter: 2012Q2

REPORT INFORMATION
  Report Type: 
  Country: None (occurrence: None)
  Receive Date: 20120502
  Receipt Date: 20120411
  Transmission Date: 20120825
  Serious: Yes (Other)
  Sender: FDA-Public Use
  Company Number: US-AMGEN-USASP2011049728

PATIENT
  Age: 29 Year
  Sex: Male
  Weight: 96.145 kg

DRUGS (3)
  1. ENBREL [Suspect]
     Dosage: 50 MG, QWK
     Dates: start: 20060101, end: 20110801
  2. PLAQUENIL [Concomitant]
     Dosage: UNK
     Dates: start: 20110901
  3. ENBREL [Suspect]
     Indication: RHEUMATOID ARTHRITIS
     Dosage: 50 MG, QWK
     Route: 058
     Dates: start: 20090101

REACTIONS (10)
  - NIGHT SWEATS [None]
  - ABDOMINAL PAIN [None]
  - ANAL SPASM [None]
  - RASH [None]
  - ANTINUCLEAR ANTIBODY POSITIVE [None]
  - INFLAMMATION [None]
  - DYSURIA [None]
  - DIZZINESS [None]
  - BREAKTHROUGH PAIN [None]
  - MICTURITION URGENCY [None]
